FAERS Safety Report 16066103 (Version 1)
Quarter: 2019Q2

REPORT INFORMATION
  Report Type: Spontaneous
  Country: US (occurrence: US)
  Receive Date: 20190312
  Receipt Date: 20190312
  Transmission Date: 20190711
  Serious: Yes (Other)
  Sender: FDA-Public Use
  Company Number: None

PATIENT
  Age: 33 Year
  Sex: Male
  Weight: 67.5 kg

DRUGS (1)
  1. NAPROXEN SODIUM. [Suspect]
     Active Substance: NAPROXEN SODIUM
     Indication: HEADACHE
     Dosage: ?          QUANTITY:2 TABLET(S);?
     Route: 048
     Dates: start: 20131113, end: 20190310

REACTIONS (6)
  - Lip swelling [None]
  - Joint stiffness [None]
  - Pruritus [None]
  - Urticaria [None]
  - Pallor [None]
  - Pollakiuria [None]

NARRATIVE: CASE EVENT DATE: 20190310
